FAERS Safety Report 17858043 (Version 2)
Quarter: 2020Q2

REPORT INFORMATION
  Report Type: Spontaneous
  Country: US (occurrence: US)
  Receive Date: 20200604
  Receipt Date: 20200610
  Transmission Date: 20200714
  Serious: No
  Sender: FDA-Public Use
  Company Number: US-009507513-2006USA001278

PATIENT
  Age: 23 Year
  Sex: Female
  Weight: 52.61 kg

DRUGS (1)
  1. NEXPLANON [Suspect]
     Active Substance: ETONOGESTREL
     Indication: CONTRACEPTION
     Dosage: 1 IMPLANT, 3 YEARS IMPLANT, IN THE LEFT ARM
     Route: 059
     Dates: start: 20180525

REACTIONS (2)
  - Menstruation irregular [Not Recovered/Not Resolved]
  - Menorrhagia [Not Recovered/Not Resolved]
